FAERS Safety Report 20635069 (Version 1)
Quarter: 2022Q1

REPORT INFORMATION
  Report Type: Report from Study
  Country: FR (occurrence: FR)
  Receive Date: 20220325
  Receipt Date: 20220325
  Transmission Date: 20220423
  Serious: Yes (Life-Threatening, Hospitalization)
  Sender: FDA-Public Use
  Company Number: FR-SERVIER-S21010063

PATIENT

DRUGS (5)
  1. PEGASPARGASE [Suspect]
     Active Substance: PEGASPARGASE
     Indication: Acute lymphocytic leukaemia
     Dosage: 1875 IU, D4
     Route: 042
     Dates: start: 20210628
  2. TN UNSPECIFIED [Concomitant]
     Indication: Acute lymphocytic leukaemia
     Dosage: 18.4 MG, D1, D8, STOPPED ON D15
     Route: 042
     Dates: start: 20210625, end: 20210702
  3. TN UNSPECIFIED [Concomitant]
     Indication: Acute lymphocytic leukaemia
     Dosage: 1.1 MG, D1, D8, STOPPED ON D15
     Route: 042
     Dates: start: 20210625, end: 20210702
  4. TN UNSPECIFIED [Concomitant]
     Indication: Acute lymphocytic leukaemia
     Dosage: 12 MG, D4
     Route: 037
     Dates: start: 20210628
  5. TN UNSPECIFIED [Concomitant]
     Indication: Acute lymphocytic leukaemia
     Dosage: 7.5 MG, D1 TO D4
     Route: 048
     Dates: start: 20210625, end: 20210709

REACTIONS (2)
  - Staphylococcal sepsis [Not Recovered/Not Resolved]
  - Sepsis [Recovered/Resolved]

NARRATIVE: CASE EVENT DATE: 20210707
